FAERS Safety Report 6895635-0 (Version None)
Quarter: 2010Q3

REPORT INFORMATION
  Report Type: 
  Country: None (occurrence: None)
  Receive Date: 20100802
  Receipt Date: 20100729
  Transmission Date: 20110219
  Serious: Yes (Death, Other)
  Sender: FDA-Public Use
  Company Number: PHHY2010GT48303

PATIENT
  Age: 68 Year
  Sex: Female

DRUGS (2)
  1. DIOVAN HCT [Suspect]
     Dosage: 160/25MG
     Dates: start: 20100101
  2. EUTIROX [Concomitant]

REACTIONS (3)
  - DIABETES MELLITUS [None]
  - HYPERTENSIVE CRISIS [None]
  - HYPOTHYROIDISM [None]
